FAERS Safety Report 25896111 (Version 2)
Quarter: 2025Q4

REPORT INFORMATION
  Report Type: Report from Study
  Country: US (occurrence: US)
  Receive Date: 20251008
  Receipt Date: 20251201
  Transmission Date: 20260117
  Serious: Yes (Life-Threatening, Hospitalization, Other)
  Sender: ALEXION PHARMACEUTICALS
  Company Number: US-AstraZeneca-CH-00741739A

PATIENT
  Sex: Female

DRUGS (1)
  1. SOLIRIS [Suspect]
     Active Substance: ECULIZUMAB
     Indication: Atypical haemolytic uraemic syndrome
     Dosage: UNK
     Route: 065

REACTIONS (16)
  - Movement disorder [Recovering/Resolving]
  - Pain [Recovering/Resolving]
  - Thrombosis [Recovered/Resolved with Sequelae]
  - Liver injury [Unknown]
  - Pulse absent [Recovering/Resolving]
  - Blood pressure decreased [Recovering/Resolving]
  - Crohn^s disease [Unknown]
  - Spleen disorder [Unknown]
  - Thyroid hormones increased [Unknown]
  - General physical health deterioration [Unknown]
  - Gait disturbance [Recovering/Resolving]
  - Dehydration [Recovering/Resolving]
  - Chromaturia [Recovering/Resolving]
  - Amnesia [Unknown]
  - Alopecia [Recovered/Resolved]
  - Thyroid disorder [Recovered/Resolved]
